FAERS Safety Report 6058985-6 (Version None)
Quarter: 2009Q1

REPORT INFORMATION
  Report Type: 
  Country: None (occurrence: None)
  Receive Date: 20090130
  Receipt Date: 20090123
  Transmission Date: 20090719
  Serious: Yes (Hospitalization)
  Sender: FDA-Public Use
  Company Number: A0765744A

PATIENT
  Age: 46 Year
  Sex: Male

DRUGS (4)
  1. AVANDIA [Suspect]
     Dosage: 8MG PER DAY
     Route: 048
     Dates: start: 19990101, end: 20060101
  2. INSULIN [Concomitant]
  3. LOPRESSOR [Concomitant]
  4. FOLIC ACID [Concomitant]

REACTIONS (3)
  - HEART INJURY [None]
  - ISCHAEMIC STROKE [None]
  - MYOCARDIAL INFARCTION [None]
